FAERS Safety Report 18170774 (Version 1)
Quarter: 2020Q3

REPORT INFORMATION
  Report Type: Spontaneous
  Country: CN (occurrence: CN)
  Receive Date: 20200819
  Receipt Date: 20200819
  Transmission Date: 20201103
  Serious: Yes (Hospitalization)
  Sender: FDA-Public Use
  Company Number: CN-JNJFOC-20200820480

PATIENT
  Age: 41 Year
  Sex: Male
  Weight: 75 kg

DRUGS (1)
  1. RIVAROXABAN [Suspect]
     Active Substance: RIVAROXABAN
     Indication: PORTAL VEIN THROMBOSIS
     Dosage: 15 MG, BID
     Route: 048
     Dates: start: 20200328, end: 20200727

REACTIONS (7)
  - Asthenia [Recovered/Resolved]
  - Product use in unapproved indication [Unknown]
  - Upper gastrointestinal haemorrhage [Recovered/Resolved]
  - Off label use [Unknown]
  - Shock haemorrhagic [Unknown]
  - Faeces discoloured [Recovered/Resolved]
  - Palpitations [Recovered/Resolved]

NARRATIVE: CASE EVENT DATE: 20200328
